FAERS Safety Report 7293382-7 (Version None)
Quarter: 2011Q1

REPORT INFORMATION
  Report Type: 
  Country: None (occurrence: None)
  Receive Date: 20110204
  Receipt Date: 20110125
  Transmission Date: 20110831
  Serious: Yes (Hospitalization, Disabling, Other)
  Sender: FDA-Public Use
  Company Number: 2010AL000030

PATIENT
  Age: 77 Year
  Sex: Female

DRUGS (12)
  1. TORADOL [Concomitant]
  2. PRAVACHOL [Concomitant]
  3. DIAZEPAM [Concomitant]
  4. PLAVIX [Concomitant]
  5. LEVBID [Concomitant]
  6. METOCLOPRAMIDE [Suspect]
     Dosage: 10 MG; QID; PO
     Route: 048
     Dates: start: 20010125, end: 20030506
  7. VERAPAMIL [Concomitant]
  8. IMIPRAMINE [Concomitant]
  9. EFFEXOR [Concomitant]
  10. PRILOSEC [Concomitant]
  11. ALPRAZOLAM [Concomitant]
  12. PREV MEDS [Concomitant]

REACTIONS (33)
  - ACTIVITIES OF DAILY LIVING IMPAIRED [None]
  - FALL [None]
  - PALPITATIONS [None]
  - BACK PAIN [None]
  - MUSCULOSKELETAL PAIN [None]
  - JOINT SPRAIN [None]
  - BRUXISM [None]
  - VIITH NERVE PARALYSIS [None]
  - TONGUE DISORDER [None]
  - PARKINSONISM [None]
  - SPINAL COLUMN STENOSIS [None]
  - INSOMNIA [None]
  - VENTRICULAR HYPERTROPHY [None]
  - DYSKINESIA [None]
  - PAIN [None]
  - TARDIVE DYSKINESIA [None]
  - CHEST DISCOMFORT [None]
  - DEFORMITY [None]
  - BRADYKINESIA [None]
  - GLOSSODYNIA [None]
  - HIATUS HERNIA [None]
  - TRANSIENT ISCHAEMIC ATTACK [None]
  - BLOOD ALKALINE PHOSPHATASE INCREASED [None]
  - TONGUE OEDEMA [None]
  - GLOSSITIS [None]
  - INJURY [None]
  - NERVOUS SYSTEM DISORDER [None]
  - EXTRAPYRAMIDAL DISORDER [None]
  - CEREBROVASCULAR ACCIDENT [None]
  - SPONDYLOLISTHESIS [None]
  - GRUNTING [None]
  - METABOLIC ENCEPHALOPATHY [None]
  - BLOOD GLUCOSE INCREASED [None]
